FAERS Safety Report 20687086 (Version 1)
Quarter: 2022Q2

REPORT INFORMATION
  Report Type: Spontaneous
  Country: US (occurrence: US)
  Receive Date: 20220407
  Receipt Date: 20220407
  Transmission Date: 20220721
  Serious: Yes (Other)
  Sender: FDA-Public Use
  Company Number: US-BEH-2022143643

PATIENT
  Sex: Female

DRUGS (1)
  1. HIZENTRA [Suspect]
     Active Substance: HUMAN IMMUNOGLOBULIN G
     Indication: Selective IgA immunodeficiency
     Dosage: 18 GRAM, QOW
     Route: 058
     Dates: start: 201611

REACTIONS (4)
  - Multiple fractures [Unknown]
  - Fall [Unknown]
  - No adverse event [Unknown]
  - Product dose omission issue [Unknown]
